FAERS Safety Report 25420931 (Version 1)
Quarter: 2025Q2

REPORT INFORMATION
  Report Type: Spontaneous
  Country: DE (occurrence: DE)
  Receive Date: 20250611
  Receipt Date: 20250611
  Transmission Date: 20250717
  Serious: Yes (Other)
  Sender: TEVA
  Company Number: DE-TEVA-VS-3339817

PATIENT
  Age: 41 Year
  Sex: Female

DRUGS (1)
  1. COPAXONE [Suspect]
     Active Substance: GLATIRAMER ACETATE
     Indication: Relapsing multiple sclerosis
     Route: 065
     Dates: end: 20250602

REACTIONS (10)
  - Near death experience [Unknown]
  - Lip swelling [Recovered/Resolved]
  - Dyspepsia [Recovered/Resolved]
  - Chills [Recovered/Resolved]
  - Nausea [Recovered/Resolved]
  - Immediate post-injection reaction [Recovered/Resolved]
  - Vomiting [Not Recovered/Not Resolved]
  - Chest discomfort [Recovered/Resolved]
  - Injection site erythema [Recovered/Resolved]
  - Swelling face [Recovered/Resolved]

NARRATIVE: CASE EVENT DATE: 20250101
